FAERS Safety Report 11076752 (Version 1)
Quarter: 2015Q2

REPORT INFORMATION
  Report Type: Spontaneous
  Country: US (occurrence: US)
  Receive Date: 20150429
  Receipt Date: 20150429
  Transmission Date: 20150821
  Serious: Yes (Death, Hospitalization, Other)
  Sender: FDA-Public Use
  Company Number: US-MALLINCKRODT-T201502263

PATIENT
  Sex: Male

DRUGS (3)
  1. SYNTHROID [Concomitant]
     Active Substance: LEVOTHYROXINE SODIUM
     Indication: HYPOTHYROIDISM
  2. H.P. ACTHAR [Suspect]
     Active Substance: CORTICOTROPIN
     Indication: NEPHROTIC SYNDROME
     Dosage: 56 UNITS, TWICE WEEKLY
     Route: 058
     Dates: start: 20150327
  3. COREG [Concomitant]
     Active Substance: CARVEDILOL
     Indication: HYPERTENSION

REACTIONS (9)
  - Hepatic encephalopathy [Unknown]
  - Pulmonary oedema [Unknown]
  - Mitral valve incompetence [Unknown]
  - Fall [Unknown]
  - Tricuspid valve incompetence [Unknown]
  - Respiratory failure [Fatal]
  - Encephalopathy [Unknown]
  - Ascites [Unknown]
  - Pleural effusion [Unknown]
